FAERS Safety Report 10146076 (Version 1)
Quarter: 2014Q2

REPORT INFORMATION
  Report Type: Spontaneous
  Country: US (occurrence: None)
  Receive Date: 20140430
  Receipt Date: 20140430
  Transmission Date: 20141212
  Serious: Yes (Death)
  Sender: FDA-Public Use
  Company Number: None

PATIENT
  Age: 74 Year
  Sex: Female

DRUGS (10)
  1. DABIGATRAN [Suspect]
     Indication: ATRIAL FIBRILLATION
     Route: 048
     Dates: start: 20130825
  2. AMIODARONE [Concomitant]
  3. ASCPRBOC ACOD [Concomitant]
  4. DOCUSATE [Concomitant]
  5. FERROUS SULFATE [Concomitant]
  6. METOPROLOL SUCCINATE [Concomitant]
  7. VITAMIN D [Concomitant]
  8. RANITIDINE [Concomitant]
  9. LEVOTHYROXINE [Concomitant]
  10. ACETAMINOPHEN [Concomitant]

REACTIONS (4)
  - Asthenia [None]
  - Anaemia [None]
  - Gastrointestinal haemorrhage [None]
  - Gait disturbance [None]
